FAERS Safety Report 25357816 (Version 1)
Quarter: 2025Q2

REPORT INFORMATION
  Report Type: Spontaneous
  Country: IL (occurrence: IL)
  Receive Date: 20250526
  Receipt Date: 20250526
  Transmission Date: 20250717
  Serious: Yes (Life-Threatening)
  Sender: EMD SERONO INC
  Company Number: IL-Merck Healthcare KGaA-2025025309

PATIENT
  Age: 48 Year
  Sex: Female

DRUGS (1)
  1. EUTHYROX [Suspect]
     Active Substance: LEVOTHYROXINE SODIUM
     Indication: Product used for unknown indication

REACTIONS (5)
  - Epilepsy [Unknown]
  - Headache [Unknown]
  - Vomiting [Unknown]
  - Hyperhidrosis [Unknown]
  - Tremor [Unknown]
